FAERS Safety Report 7361151-5 (Version None)
Quarter: 2011Q1

REPORT INFORMATION
  Report Type: 
  Country: None (occurrence: None)
  Receive Date: 20110318
  Receipt Date: 20110314
  Transmission Date: 20110831
  Serious: Yes (Hospitalization, Other)
  Sender: FDA-Public Use
  Company Number: US-ELI_LILLY_AND_COMPANY-US201103005034

PATIENT
  Age: 46 Year
  Sex: Female

DRUGS (3)
  1. EFFIENT [Suspect]
     Indication: STENT PLACEMENT
     Dosage: 1 D/F, UNK
     Dates: start: 20110301
  2. EFFIENT [Suspect]
     Dosage: 10 MG, DAILY (1/D)
     Dates: start: 20110302
  3. ASPIRIN [Concomitant]
     Dosage: 325 MG, DAILY (1/D)

REACTIONS (2)
  - THROMBOSIS IN DEVICE [None]
  - DRUG INEFFECTIVE [None]
